FAERS Safety Report 9438971 (Version 3)
Quarter: 2014Q1

REPORT INFORMATION
  Report Type: Spontaneous
  Country: GB (occurrence: GB)
  Receive Date: 20130802
  Receipt Date: 20140117
  Transmission Date: 20141002
  Serious: Yes (Congenital Anomaly)
  Sender: FDA-Public Use
  Company Number: PHHY2013GB080429

PATIENT
  Sex: Female
  Weight: 2.65 kg

DRUGS (2)
  1. QUETIAPINE [Suspect]
     Indication: BIPOLAR DISORDER
     Dosage: 300 MG (DATE STARTED DURING PREGNANCY, STOPPED 4 WEEKS BEFORE DELIVERY)
     Route: 064
  2. DIAZEPAM [Concomitant]
     Dosage: 2 MG, TID

REACTIONS (2)
  - Congenital hand malformation [Unknown]
  - Arthropathy [Unknown]
